FAERS Safety Report 4396733-6 (Version None)
Quarter: 2004Q3

REPORT INFORMATION
  Report Type: 
  Country: None (occurrence: None)
  Receive Date: 20040709
  Receipt Date: 20040629
  Transmission Date: 20050211
  Serious: Yes (Other)
  Sender: FDA-Public Use
  Company Number: 2004221716JP

PATIENT
  Age: 58 Year
  Sex: Male

DRUGS (5)
  1. DALACIN INJECTION (CLINDAMYCIN) SOLUTION, STERILE [Suspect]
     Indication: INFECTION
     Dosage: 1200 MG, DAILY, IV
     Route: 042
     Dates: start: 20040624, end: 20040629
  2. VANCOMYCIN [Suspect]
     Indication: STAPHYLOCOCCAL INFECTION
     Dosage: IV
     Route: 042
     Dates: start: 20040614, end: 20040623
  3. FIRSTICIN [Concomitant]
  4. NEUTROGIN [Concomitant]
  5. FOY (GABEXATE MESILATE) [Concomitant]

REACTIONS (2)
  - ASPARTATE AMINOTRANSFERASE INCREASED [None]
  - BLOOD CREATINE PHOSPHOKINASE INCREASED [None]
